FAERS Safety Report 22170641 (Version 1)
Quarter: 2023Q2

REPORT INFORMATION
  Report Type: Spontaneous
  Country: US (occurrence: US)
  Receive Date: 20230404
  Receipt Date: 20230404
  Transmission Date: 20230722
  Serious: Yes (Other)
  Sender: FDA-Public Use
  Company Number: US-drreddys-SPO/USA/23/0163083

PATIENT
  Age: 27 Year

DRUGS (1)
  1. ACCUTANE [Suspect]
     Active Substance: ISOTRETINOIN
     Indication: Product used for unknown indication
     Dosage: RMA ISSUE DATE: 02 DECEMBER 2022 02:45:05 PM,11 JANUARY 2023 12:53:50 PM,15 FEBRUARY 2023 02:29:38 P

REACTIONS (1)
  - Depressive symptom [Unknown]
